FAERS Safety Report 17521922 (Version 2)
Quarter: 2020Q2

REPORT INFORMATION
  Report Type: Spontaneous
  Country: US (occurrence: US)
  Receive Date: 20200310
  Receipt Date: 20200429
  Transmission Date: 20200713
  Serious: No
  Sender: FDA-Public Use
  Company Number: US-FARMAPROD-201911-1739

PATIENT
  Sex: Male
  Weight: 98 kg

DRUGS (5)
  1. MOXIFLOXACIN. [Concomitant]
     Active Substance: MOXIFLOXACIN
     Route: 048
  2. OXERVATE [Suspect]
     Active Substance: CENEGERMIN-BKBJ
     Indication: NEUROTROPHIC KERATOPATHY
     Route: 047
     Dates: start: 20191007, end: 20191028
  3. PRED FORTE [Concomitant]
     Active Substance: PREDNISOLONE ACETATE
     Route: 048
  4. ACICLOVIR [Concomitant]
     Active Substance: ACYCLOVIR
  5. COSOPT [Concomitant]
     Active Substance: DORZOLAMIDE HYDROCHLORIDE\TIMOLOL MALEATE
     Route: 048

REACTIONS (1)
  - Eye irritation [Recovered/Resolved]
